FAERS Safety Report 5325055-1 (Version None)
Quarter: 2007Q2

REPORT INFORMATION
  Report Type: 
  Country: None (occurrence: None)
  Receive Date: 20070515
  Receipt Date: 20070504
  Transmission Date: 20071010
  Serious: Yes (Hospitalization)
  Sender: FDA-Public Use
  Company Number: US-JNJFOC-20070103056

PATIENT
  Sex: Male
  Weight: 68.04 kg

DRUGS (11)
  1. REMICADE [Suspect]
  2. REMICADE [Suspect]
     Indication: CROHN'S DISEASE
  3. ZOLOFT [Concomitant]
  4. PREDNISONE TAB [Concomitant]
     Route: 048
  5. LANTUS [Concomitant]
     Route: 058
  6. NOVOLOG [Concomitant]
     Dosage: SLIDING SCALE, THREE TIMES A DAY
  7. ISONIAZID [Concomitant]
     Indication: ANTIBIOTIC PROPHYLAXIS
     Route: 048
  8. CLOTRIMAZOLE [Concomitant]
  9. NYSTATIN [Concomitant]
     Dosage: ANAL AREA, TWICE A DAY
     Route: 061
  10. MULTI-VITAMIN [Concomitant]
     Route: 048
  11. CALCIUM CARBONATE [Concomitant]
     Route: 048

REACTIONS (21)
  - ANAEMIA [None]
  - ATRIAL FIBRILLATION [None]
  - CANDIDIASIS [None]
  - CARDIOGENIC SHOCK [None]
  - CARDIOMYOPATHY [None]
  - CONJUNCTIVITIS BACTERIAL [None]
  - CYTOMEGALOVIRUS COLITIS [None]
  - DEEP VEIN THROMBOSIS [None]
  - ENCEPHALOPATHY [None]
  - HYPOVOLAEMIC SHOCK [None]
  - MALNUTRITION [None]
  - PANCYTOPENIA [None]
  - PNEUMOMEDIASTINUM [None]
  - PNEUMONIA BACTERIAL [None]
  - PNEUMOPERITONEUM [None]
  - PNEUMOTHORAX [None]
  - PULMONARY OEDEMA [None]
  - RESPIRATORY FAILURE [None]
  - SEPTIC SHOCK [None]
  - SYNCOPE [None]
  - VENTRICULAR TACHYCARDIA [None]
